FAERS Safety Report 8518727-9 (Version None)
Quarter: 2012Q3

REPORT INFORMATION
  Report Type: 
  Country: None (occurrence: None)
  Receive Date: 20120718
  Receipt Date: 20120703
  Transmission Date: 20120928
  Serious: No
  Sender: FDA-Public Use
  Company Number: US-ASTRAZENECA-2011SE36894

PATIENT
  Age: 53 Year
  Sex: Female

DRUGS (5)
  1. SEROQUEL XR [Suspect]
     Route: 048
  2. SEROQUEL XR [Suspect]
     Route: 048
     Dates: start: 20100101
  3. TRAZODONE HCL [Concomitant]
     Indication: SLEEP DISORDER
  4. SEROQUEL XR [Suspect]
     Route: 048
  5. CLONAZEPAM [Concomitant]

REACTIONS (5)
  - MENTAL IMPAIRMENT [None]
  - DRUG INEFFECTIVE [None]
  - WEIGHT DECREASED [None]
  - DRUG DOSE OMISSION [None]
  - INTENTIONAL DRUG MISUSE [None]
